FAERS Safety Report 5140066-7 (Version None)
Quarter: 2006Q4

REPORT INFORMATION
  Report Type: 
  Country: None (occurrence: None)
  Receive Date: 20061024
  Receipt Date: 20061005
  Transmission Date: 20070319
  Serious: Yes (Death, Life-Threatening, Other)
  Sender: FDA-Public Use
  Company Number: US200608006402

PATIENT
  Age: 77 Year
  Sex: Female

DRUGS (6)
  1. XIGRIS [Suspect]
     Indication: SEPSIS
     Dosage: INTRAVENOUS
     Route: 042
     Dates: start: 20060821
  2. HEPARIN [Concomitant]
  3. PROPOFOL [Concomitant]
  4. ZOSYN [Concomitant]
  5. ZITHROMAX [Concomitant]
  6. ARANESP [Concomitant]

REACTIONS (7)
  - CATHETER SITE HAEMORRHAGE [None]
  - DISSEMINATED INTRAVASCULAR COAGULATION [None]
  - HYDRONEPHROSIS [None]
  - OEDEMA [None]
  - RESPIRATORY FAILURE [None]
  - THROMBOCYTOPENIA [None]
  - URETERIC OBSTRUCTION [None]
